FAERS Safety Report 10471295 (Version 1)
Quarter: 2014Q3

REPORT INFORMATION
  Report Type: Spontaneous
  Country: US (occurrence: US)
  Receive Date: 20140923
  Receipt Date: 20140923
  Transmission Date: 20150326
  Serious: No
  Sender: FDA-Public Use
  Company Number: US-TEVA-510985USA

PATIENT
  Age: 28 Year
  Sex: Female
  Weight: 63.11 kg

DRUGS (2)
  1. PARAGARD T380A [Suspect]
     Active Substance: COPPER
     Indication: CONTRACEPTION
     Route: 015
     Dates: start: 20140306, end: 20140902
  2. PARAGARD T380A [Suspect]
     Active Substance: COPPER
     Route: 015
     Dates: start: 20140902

REACTIONS (5)
  - Abdominal pain lower [Unknown]
  - Dyspareunia [Unknown]
  - Device expulsion [Recovered/Resolved]
  - White blood cell count decreased [Not Recovered/Not Resolved]
  - Pelvic pain [Recovered/Resolved]

NARRATIVE: CASE EVENT DATE: 20140902
